FAERS Safety Report 17909945 (Version 1)
Quarter: 2020Q2

REPORT INFORMATION
  Report Type: Spontaneous
  Country: GB (occurrence: GB)
  Receive Date: 20200618
  Receipt Date: 20200618
  Transmission Date: 20200714
  Serious: Yes (Other)
  Sender: FDA-Public Use
  Company Number: GB-TEVA-2020-GB-1788194

PATIENT
  Age: 59 Year
  Sex: Female

DRUGS (7)
  1. CINNARIZINE [Concomitant]
     Active Substance: CINNARIZINE
  2. ATORVASTATIN [Suspect]
     Active Substance: ATORVASTATIN
     Dosage: 40 MG
     Route: 048
     Dates: start: 20200512, end: 20200524
  3. ACETYLSALICYLIC ACID [Concomitant]
     Active Substance: ASPIRIN
  4. ACCORD HEALTHCARE AMLODIPINE [Concomitant]
     Active Substance: AMLODIPINE BESYLATE
  5. ACCORD HEALTHCARE SERTRALINE [Concomitant]
     Active Substance: SERTRALINE HYDROCHLORIDE
  6. BRISTOL LABS LANSOPRAZOLE GASTRO-RESISTANT [Concomitant]
  7. BRISTOL LABS RAMIPRIL [Concomitant]
     Active Substance: RAMIPRIL

REACTIONS (4)
  - Muscle spasms [Unknown]
  - Hypoaesthesia [Not Recovered/Not Resolved]
  - Contusion [Unknown]
  - Tinnitus [Unknown]

NARRATIVE: CASE EVENT DATE: 20200514
